FAERS Safety Report 20978830 (Version 2)
Quarter: 2022Q3

REPORT INFORMATION
  Report Type: Spontaneous
  Country: JP (occurrence: JP)
  Receive Date: 20220619
  Receipt Date: 20220818
  Transmission Date: 20221027
  Serious: Yes (Death, Other)
  Sender: FDA-Public Use
  Company Number: JP-ONO-2022JP016714

PATIENT
  Sex: Male

DRUGS (1)
  1. OPDIVO [Suspect]
     Active Substance: NIVOLUMAB
     Indication: Non-small cell lung cancer recurrent
     Route: 042

REACTIONS (5)
  - Biliary tract infection [Fatal]
  - Liver abscess [Fatal]
  - Cholangitis sclerosing [Unknown]
  - Adrenal insufficiency [Unknown]
  - Hypopituitarism [Unknown]
